FAERS Safety Report 15317874 (Version 2)
Quarter: 2018Q3

REPORT INFORMATION
  Report Type: Spontaneous
  Country: US (occurrence: US)
  Receive Date: 20180824
  Receipt Date: 20180907
  Transmission Date: 20181010
  Serious: No
  Sender: FDA-Public Use
  Company Number: US-JNJFOC-20180810307

PATIENT
  Age: 22 Year
  Sex: Male
  Weight: 98.88 kg

DRUGS (2)
  1. INVEGA SUSTENNA [Suspect]
     Active Substance: PALIPERIDONE PALMITATE
     Indication: PRODUCT USED FOR UNKNOWN INDICATION
     Route: 030
     Dates: start: 201707, end: 201712
  2. INVEGA SUSTENNA [Suspect]
     Active Substance: PALIPERIDONE PALMITATE
     Indication: PRODUCT USED FOR UNKNOWN INDICATION
     Route: 030
     Dates: start: 201712

REACTIONS (8)
  - Abnormal behaviour [Not Recovered/Not Resolved]
  - Weight increased [Unknown]
  - Drug dose omission [Unknown]
  - Vitamin B12 deficiency [Not Recovered/Not Resolved]
  - Drug ineffective [Unknown]
  - Vitamin D deficiency [Not Recovered/Not Resolved]
  - Renal function test abnormal [Unknown]
  - Chromaturia [Unknown]

NARRATIVE: CASE EVENT DATE: 201712
